FAERS Safety Report 7910063-4 (Version None)
Quarter: 2011Q4

REPORT INFORMATION
  Report Type: 
  Country: None (occurrence: None)
  Receive Date: 20111111
  Receipt Date: 20111026
  Transmission Date: 20120403
  Serious: Yes (Hospitalization)
  Sender: FDA-Public Use
  Company Number: JP-ROCHE-626467

PATIENT
  Sex: Female

DRUGS (13)
  1. PREDNISOLONE [Concomitant]
     Dosage: INFUSION RATE DECREASED
     Route: 048
  2. INSULIN GLARGINE [Concomitant]
     Dosage: INFUSION RATE DECREASED
     Route: 058
     Dates: start: 20090105
  3. PROGRAF [Concomitant]
     Indication: RHEUMATOID ARTHRITIS
     Dosage: INFUSION RATE DECREASED
     Route: 048
  4. TRICHLORMETHIAZIDE [Concomitant]
     Route: 048
  5. NOVORAPID [Concomitant]
     Dosage: INFUSION RATE DECREASED
     Route: 058
  6. ACTEMRA [Suspect]
     Indication: RHEUMATOID ARTHRITIS
     Route: 041
     Dates: start: 20090105, end: 20090105
  7. KREMEZIN [Concomitant]
     Dosage: FORM: MINUTE GRAIN, INFUSION RATE DECREASED
     Route: 048
  8. LANTUS [Concomitant]
     Dosage: INFUSION RATE DECREASED
     Route: 058
  9. ACTEMRA [Suspect]
     Route: 041
     Dates: start: 20090202, end: 20090202
  10. LASIX [Concomitant]
     Dosage: FORM: PERORAL AGENT, INFUSION RATE DECREASED
     Route: 048
  11. EPOGIN S [Concomitant]
     Route: 042
  12. ARGAMATE [Concomitant]
     Dosage: FORM: JELLY, INFUSION RATE DECEREASED
     Route: 048
  13. ACTEMRA [Suspect]
     Dosage: DISCONTINUED

REACTIONS (1)
  - CARDIAC FAILURE [None]
